FAERS Safety Report 13880079 (Version 1)
Quarter: 2017Q3

REPORT INFORMATION
  Report Type: Spontaneous
  Country: FR (occurrence: FR)
  Receive Date: 20170818
  Receipt Date: 20170818
  Transmission Date: 20171127
  Serious: Yes (Other)
  Sender: FDA-Public Use
  Company Number: FR-MERCK KGAA-2024767

PATIENT
  Age: 29 Year
  Sex: Female

DRUGS (1)
  1. NOVOTHYROX [Suspect]
     Active Substance: LEVOTHYROXINE SODIUM
     Indication: HYPOTHYROIDISM
     Route: 048

REACTIONS (5)
  - Hyperthyroidism [Unknown]
  - Depression [Unknown]
  - Drug level changed [Unknown]
  - Weight increased [Unknown]
  - Myalgia [Unknown]

NARRATIVE: CASE EVENT DATE: 201706
